FAERS Safety Report 24238797 (Version 2)
Quarter: 2024Q4

REPORT INFORMATION
  Report Type: Spontaneous
  Country: US (occurrence: US)
  Receive Date: 20240822
  Receipt Date: 20241109
  Transmission Date: 20250114
  Serious: Yes (Hospitalization, Other)
  Sender: SANOFI AVENTIS
  Company Number: US-SA-2024SA165682

PATIENT
  Age: 58 Year
  Sex: Male

DRUGS (2)
  1. DUPIXENT [Suspect]
     Active Substance: DUPILUMAB
     Indication: Asthma
     Dosage: 600 MG, 1X
     Route: 058
     Dates: start: 20231122, end: 20231122
  2. DUPIXENT [Suspect]
     Active Substance: DUPILUMAB
     Dosage: 300 MG, QOW
     Route: 058

REACTIONS (6)
  - Pulmonary thrombosis [Unknown]
  - Hospitalisation [Recovering/Resolving]
  - Thrombosis [Recovering/Resolving]
  - Dyspnoea [Recovering/Resolving]
  - Surgery [Recovering/Resolving]
  - Oxygen therapy [Unknown]

NARRATIVE: CASE EVENT DATE: 20240701
